FAERS Safety Report 19448741 (Version 2)
Quarter: 2021Q3

REPORT INFORMATION
  Report Type: Spontaneous
  Country: FR (occurrence: IT)
  Receive Date: 20210622
  Receipt Date: 20210721
  Transmission Date: 20211014
  Serious: Yes (Death, Other)
  Sender: FDA-Public Use
  Company Number: FR-ORPHANEU-2021002005

PATIENT

DRUGS (11)
  1. ISTURISA [Suspect]
     Active Substance: OSILODROSTAT PHOSPHATE
     Indication: CUSHING^S SYNDROME
     Dosage: 2 MILLIGRAM, BID
     Route: 048
  2. DEURSIL [Concomitant]
     Active Substance: URSODIOL
     Indication: HEPATIC FAILURE
     Dosage: 450 MILLIGRAM PER DAY
     Dates: start: 202104, end: 20210521
  3. ISTURISA [Suspect]
     Active Substance: OSILODROSTAT PHOSPHATE
     Dosage: 4 MILLIGRAM, BID
     Route: 048
     Dates: start: 20210419, end: 20210521
  4. EUTIROX [Concomitant]
     Active Substance: LEVOTHYROXINE SODIUM
     Indication: AUTOIMMUNE THYROIDITIS
     Dosage: 125 MICROGRAM PER DAY
     Dates: start: 2010, end: 20210521
  5. KCL?RETARD [Concomitant]
     Active Substance: POTASSIUM CHLORIDE
     Indication: HYPOKALAEMIA
     Dosage: 600 MILLIGRAM FOUR PER DAY
     Dates: start: 202005, end: 20210521
  6. HALCION [Concomitant]
     Active Substance: TRIAZOLAM
     Indication: CANCER PAIN
     Dosage: 125 MILLIGRAM PER DAY
     Dates: start: 202104, end: 20210521
  7. RETACRIT [EPOETIN ZETA] [Concomitant]
     Active Substance: ERYTHROPOIETIN
     Indication: ANAEMIA
     Dosage: 30000 PER WEEK
     Dates: start: 202104, end: 20210521
  8. ENAPREN [Concomitant]
     Active Substance: ENALAPRIL MALEATE
     Indication: HYPERTENSION
     Dosage: 10 MILLIGRAM PER DAY
     Dates: start: 202005, end: 20210521
  9. AMLODIPINE [Concomitant]
     Active Substance: AMLODIPINE BESYLATE
     Indication: HYPERTENSION
     Dosage: 5 MILLIGRAM PER DAY
     Dates: start: 202005, end: 20210521
  10. ALDACTONE [POTASSIUM CANRENOATE] [Concomitant]
     Active Substance: CANRENOATE POTASSIUM
     Indication: HYPERTENSION
     Dosage: 150 MILLIGRAM PER DAY
     Dates: start: 202105, end: 20210521
  11. FENPATCH [Concomitant]
     Indication: CANCER PAIN
     Dosage: 12 MICROGRAM EVERY 3 DAYS
     Dates: start: 202104, end: 20210521

REACTIONS (6)
  - Metastases to liver [Unknown]
  - Neoplasm progression [Unknown]
  - Nausea [Not Recovered/Not Resolved]
  - Abdominal pain [Not Recovered/Not Resolved]
  - Cardiopulmonary failure [Fatal]
  - Dysphagia [Not Recovered/Not Resolved]

NARRATIVE: CASE EVENT DATE: 20210520
